FAERS Safety Report 8945872 (Version 1)
Quarter: 2012Q4

REPORT INFORMATION
  Report Type: 
  Country: PL (occurrence: PL)
  Receive Date: 20121205
  Receipt Date: 20121205
  Transmission Date: 20130627
  Serious: Yes (Other)
  Sender: FDA-Public Use
  Company Number: PHHY2012PL110070

PATIENT
  Sex: Female

DRUGS (2)
  1. CERTICAN [Suspect]
     Dosage: 1.75 mg, BID
     Dates: start: 20120121
  2. ENCORTON [Concomitant]
     Dosage: 10 mg, UNK
     Dates: start: 20120121

REACTIONS (5)
  - Renal neoplasm [Unknown]
  - Neoplasm progression [Unknown]
  - Nephrosclerosis [Unknown]
  - Kidney fibrosis [Unknown]
  - Lymphocytic infiltration [Unknown]
